FAERS Safety Report 5812599-9 (Version None)
Quarter: 2008Q3

REPORT INFORMATION
  Report Type: 
  Country: None (occurrence: None)
  Receive Date: 20080711
  Receipt Date: 20080627
  Transmission Date: 20090109
  Serious: Yes (Hospitalization)
  Sender: FDA-Public Use
  Company Number: 2007BI006084

PATIENT
  Age: 54 Year
  Sex: Female

DRUGS (1)
  1. AVONEX [Suspect]
     Indication: MULTIPLE SCLEROSIS
     Dosage: 30 UG; QW; IM
     Route: 030
     Dates: start: 20051027

REACTIONS (6)
  - ABASIA [None]
  - BODY TEMPERATURE INCREASED [None]
  - BONE DISORDER [None]
  - FOOT FRACTURE [None]
  - MULTIPLE FRACTURES [None]
  - THROMBOSIS [None]
